FAERS Safety Report 9181434 (Version 1)
Quarter: 2013Q1

REPORT INFORMATION
  Report Type: Spontaneous
  Country: US (occurrence: None)
  Receive Date: 20130321
  Receipt Date: 20130321
  Transmission Date: 20140127
  Serious: Yes (Other)
  Sender: FDA-Public Use
  Company Number: None

PATIENT
  Age: 81 Year
  Sex: Female
  Weight: 75.93 kg

DRUGS (10)
  1. DEPAKOTE SPRINKLES [Suspect]
     Indication: DEMENTIA
     Dosage: 250MG BID PO?
     Route: 048
     Dates: start: 20130315, end: 20130317
  2. VANCOMYCIN [Concomitant]
  3. COUMADIN [Concomitant]
  4. DILTIAZEM [Concomitant]
  5. LASIX [Concomitant]
  6. LOVASTATIN [Concomitant]
  7. METOPROLOL [Concomitant]
  8. METFORMIN [Concomitant]
  9. NOVALOG 70/30 [Concomitant]
  10. TRAZODONE [Concomitant]

REACTIONS (1)
  - Rash [None]
